FAERS Safety Report 8601303-7 (Version None)
Quarter: 2012Q3

REPORT INFORMATION
  Report Type: 
  Country: None (occurrence: None)
  Receive Date: 20120817
  Receipt Date: 20120808
  Transmission Date: 20120928
  Serious: Yes (Other)
  Sender: FDA-Public Use
  Company Number: CA-JNJFOC-20120804828

PATIENT
  Sex: Female
  Weight: 73 kg

DRUGS (2)
  1. KEFLEX [Concomitant]
     Dosage: 500 (UNIT UNSPECIFIED) FOUR TIMES A DAY FOR 10 DAYS
     Dates: start: 20120808
  2. REMICADE [Suspect]
     Indication: COLITIS ULCERATIVE
     Route: 042
     Dates: start: 20110428

REACTIONS (1)
  - MASTITIS [None]
